FAERS Safety Report 7509456-9 (Version None)
Quarter: 2011Q2

REPORT INFORMATION
  Report Type: 
  Country: None (occurrence: None)
  Receive Date: 20110527
  Receipt Date: 20110523
  Transmission Date: 20111010
  Serious: Yes (Hospitalization, Other)
  Sender: FDA-Public Use
  Company Number: US-PFIZER INC-2011044433

PATIENT
  Sex: Female

DRUGS (12)
  1. NORCO [Concomitant]
     Indication: ARTHRALGIA
  2. CYMBALTA [Concomitant]
     Indication: POST-TRAUMATIC STRESS DISORDER
     Dosage: UNK
     Dates: start: 20060101
  3. CYMBALTA [Concomitant]
     Indication: DEPRESSION
  4. NORCO [Concomitant]
     Indication: BACK PAIN
     Dosage: UNK
     Dates: start: 20060101
  5. NORCO [Concomitant]
     Indication: PAIN IN EXTREMITY
  6. XANAX [Concomitant]
     Indication: ANXIETY
     Dosage: UNK
     Dates: start: 20050101
  7. NORCO [Concomitant]
  8. RANITIDINE [Concomitant]
     Indication: GASTROOESOPHAGEAL REFLUX DISEASE
     Dosage: UNK
     Dates: start: 20050101
  9. CHANTIX [Suspect]
     Indication: SMOKING CESSATION THERAPY
     Dosage: STARTER PACK, 1 MG
     Dates: start: 20090601, end: 20090615
  10. NORCO [Concomitant]
  11. CYMBALTA [Concomitant]
     Indication: ANXIETY
  12. LIPITOR [Concomitant]
     Indication: DYSLIPIDAEMIA
     Dosage: UNK
     Dates: start: 20050101

REACTIONS (7)
  - HALLUCINATION [None]
  - SUICIDE ATTEMPT [None]
  - INTENTIONAL OVERDOSE [None]
  - DEPRESSION [None]
  - PRURITUS [None]
  - INSOMNIA [None]
  - ANXIETY [None]
